FAERS Safety Report 4754770-3 (Version None)
Quarter: 2005Q3

REPORT INFORMATION
  Report Type: 
  Country: None (occurrence: None)
  Receive Date: 20050825
  Receipt Date: 20050812
  Transmission Date: 20060218
  Serious: Yes (Life-Threatening, Other)
  Sender: FDA-Public Use
  Company Number: 2005115941

PATIENT
  Age: 59 Year
  Sex: Male

DRUGS (3)
  1. ZYVOX [Suspect]
     Indication: LOWER RESPIRATORY TRACT INFECTION
     Dosage: 600 MG, ORAL
     Route: 048
     Dates: end: 20050723
  2. DICLOFENAC SODIUM [Concomitant]
  3. LANSOPRAZOLE [Concomitant]

REACTIONS (1)
  - PANCREATITIS [None]
